FAERS Safety Report 6627725-1 (Version None)
Quarter: 2010Q1

REPORT INFORMATION
  Report Type: 
  Country: None (occurrence: None)
  Receive Date: 20100311
  Receipt Date: 20100303
  Transmission Date: 20100710
  Serious: Yes (Other)
  Sender: FDA-Public Use
  Company Number: PHEH2010US02806

PATIENT
  Sex: Male

DRUGS (10)
  1. STALEVO 100 [Suspect]
     Dosage: 150 MG, QID
     Dates: start: 20060101
  2. AZILECT [Suspect]
     Dosage: 0.5 MG, UNK
  3. ROPINIROLE [Suspect]
     Indication: PARKINSON'S DISEASE
     Dosage: 2.0 MG, QID
  4. LEVOTHYROXINE [Concomitant]
     Indication: HYPOTHYROIDISM
     Dosage: 125 MCG, UNK
  5. OMEPRAZOLE [Suspect]
     Indication: GASTROOESOPHAGEAL REFLUX DISEASE
     Dosage: 20 MG, UNK
  6. PROPAFENONE HCL [Concomitant]
     Indication: ATRIAL FIBRILLATION
     Dosage: 150 MG, TID
  7. DILTIAZEM [Concomitant]
     Indication: ATRIAL FIBRILLATION
     Dosage: 120 MG, QD
  8. WARFARIN SODIUM [Concomitant]
     Indication: ATRIAL FIBRILLATION
     Dosage: 2.5 MG, QD
  9. TRIAMCINOLONE ACETONIDE [Concomitant]
  10. CALCIUM CARBONATE W/VITAMIN D NOS [Concomitant]
     Dosage: 500 MG, QD

REACTIONS (13)
  - ABNORMAL DREAMS [None]
  - ATRIAL FIBRILLATION [None]
  - BALANCE DISORDER [None]
  - BLOOD PRESSURE DECREASED [None]
  - DIZZINESS [None]
  - DRUG INEFFECTIVE [None]
  - DYSKINESIA [None]
  - GAIT DISTURBANCE [None]
  - HALLUCINATION [None]
  - PARKINSON'S DISEASE [None]
  - SOMNOLENCE [None]
  - SUDDEN ONSET OF SLEEP [None]
  - TREMOR [None]
